FAERS Safety Report 6884579-6 (Version None)
Quarter: 2010Q3

REPORT INFORMATION
  Report Type: 
  Country: None (occurrence: None)
  Receive Date: 20100727
  Receipt Date: 20100714
  Transmission Date: 20110219
  Serious: Yes (Death)
  Sender: FDA-Public Use
  Company Number: 640462

PATIENT
  Age: 84 Year
  Sex: Male
  Weight: 77 kg

DRUGS (9)
  1. CARBOPLATIN [Suspect]
     Indication: PRODUCT USED FOR UNKNOWN INDICATION
     Dosage: 314 MILLIGRAM, ONCE, INTRAVENOUS
     Route: 042
  2. GEMCITABINE [Suspect]
     Indication: PRODUCT USED FOR UNKNOWN INDICATION
     Dosage: 2066 MILLIGRAM, ONCE, INTRAVENOUS
     Route: 042
  3. ACETAMINOPHEN W/ CODEINE [Concomitant]
  4. (DEXAMETHASONE) [Concomitant]
  5. (DILTIAZEM CD) [Concomitant]
  6. (DOCUSATE SODIUM) [Concomitant]
  7. (ENTERIC ASPIRIN) [Concomitant]
  8. FRAGMIN [Concomitant]
  9. ONDANSETRON [Concomitant]

REACTIONS (7)
  - BLOOD LACTATE DEHYDROGENASE INCREASED [None]
  - DEPRESSED LEVEL OF CONSCIOUSNESS [None]
  - HAEMOLYTIC URAEMIC SYNDROME [None]
  - PLATELET COUNT DECREASED [None]
  - PYREXIA [None]
  - RENAL FAILURE ACUTE [None]
  - VITAL FUNCTIONS ABNORMAL [None]
